FAERS Safety Report 10619704 (Version 1)
Quarter: 2014Q4

REPORT INFORMATION
  Report Type: Report from Study
  Country: CA (occurrence: CA)
  Receive Date: 20141202
  Receipt Date: 20141202
  Transmission Date: 20150529
  Serious: Yes (Hospitalization)
  Sender: FDA-Public Use
  Company Number: CA-BRISTOL-MYERS SQUIBB COMPANY-21655352

PATIENT
  Age: 72 Year
  Sex: Female

DRUGS (16)
  1. ORENCIA [Suspect]
     Active Substance: ABATACEPT
     Indication: RHEUMATOID ARTHRITIS
     Route: 042
     Dates: start: 20091021
  2. ARAVA [Concomitant]
     Active Substance: LEFLUNOMIDE
  3. MORPHINE [Concomitant]
     Active Substance: MORPHINE
  4. PLAQUENIL [Concomitant]
     Active Substance: HYDROXYCHLOROQUINE SULFATE
  5. FOLIC ACID. [Concomitant]
     Active Substance: FOLIC ACID
  6. LIPITOR [Concomitant]
     Active Substance: ATORVASTATIN CALCIUM
  7. PLAVIX [Concomitant]
     Active Substance: CLOPIDOGREL BISULFATE
  8. MOTILIUM [Concomitant]
     Active Substance: DOMPERIDONE
  9. PREDNISONE. [Concomitant]
     Active Substance: PREDNISONE
  10. STATEX [Concomitant]
     Active Substance: MORPHINE SULFATE
  11. M-ESLON [Concomitant]
     Active Substance: MORPHINE SULFATE
  12. DESYREL [Concomitant]
     Active Substance: TRAZODONE HYDROCHLORIDE
  13. PANTOLOC [Concomitant]
     Active Substance: PANTOPRAZOLE SODIUM
  14. MONOCOR [Concomitant]
     Active Substance: BISOPROLOL FUMARATE
  15. SERAX [Concomitant]
     Active Substance: OXAZEPAM
  16. PULMICORT TURBUHALER [Concomitant]
     Active Substance: BUDESONIDE

REACTIONS (1)
  - Pulmonary embolism [Unknown]
